FAERS Safety Report 15676195 (Version 1)
Quarter: 2018Q4

REPORT INFORMATION
  Report Type: Spontaneous
  Country: IT (occurrence: IT)
  Receive Date: 20181130
  Receipt Date: 20181130
  Transmission Date: 20190205
  Serious: Yes (Other)
  Sender: FDA-Public Use
  Company Number: PHHY2018IT168860

PATIENT
  Age: 70 Year
  Sex: Male

DRUGS (1)
  1. DOCETAXEL. [Suspect]
     Active Substance: DOCETAXEL
     Indication: DESMOID TUMOUR
     Dosage: 75 MG/M2, Q3W
     Route: 065

REACTIONS (2)
  - Product use in unapproved indication [Unknown]
  - Neuropathy peripheral [Recovering/Resolving]
